FAERS Safety Report 20602205 (Version 1)
Quarter: 2022Q1

REPORT INFORMATION
  Report Type: Spontaneous
  Country: CA (occurrence: CA)
  Receive Date: 20220316
  Receipt Date: 20220316
  Transmission Date: 20220424
  Serious: Yes (Other)
  Sender: FDA-Public Use
  Company Number: CA-NAPPMUNDI-GBR-2022-0095796

PATIENT
  Age: 76 Year
  Sex: Female
  Weight: 59 kg

DRUGS (3)
  1. DILAUDID [Suspect]
     Active Substance: HYDROMORPHONE HYDROCHLORIDE
     Indication: Product used for unknown indication
     Dosage: UNKNOWN
     Route: 065
  2. PEMBROLIZUMAB [Suspect]
     Active Substance: PEMBROLIZUMAB
     Indication: Transitional cell carcinoma
     Dosage: 200 MG, EVERY 3 WEEKS
     Route: 042
  3. PEMBROLIZUMAB [Suspect]
     Active Substance: PEMBROLIZUMAB
     Dosage: 200 MG, EVERY 3 WEEKS
     Route: 042

REACTIONS (16)
  - Metastasis [Unknown]
  - Anxiety [Unknown]
  - Bladder pain [Unknown]
  - Bone lesion [Unknown]
  - Constipation [Unknown]
  - Decreased appetite [Unknown]
  - Depressed mood [Unknown]
  - Dyspnoea [Unknown]
  - Fatigue [Unknown]
  - Fungal skin infection [Unknown]
  - Nausea [Unknown]
  - Palliative care [Unknown]
  - Proctalgia [Unknown]
  - Pulmonary mass [Unknown]
  - Terminal state [Unknown]
  - Vertebral lesion [Unknown]
